FAERS Safety Report 7999176-9 (Version None)
Quarter: 2011Q4

REPORT INFORMATION
  Report Type: 
  Country: None (occurrence: None)
  Receive Date: 20111221
  Receipt Date: 20111216
  Transmission Date: 20120403
  Serious: Yes (Death, Hospitalization, Other)
  Sender: FDA-Public Use
  Company Number: US-CELGENEUS-163-21880-11111397

PATIENT
  Sex: Female

DRUGS (10)
  1. LEVOTHROID [Concomitant]
     Route: 065
  2. ZOFRAN [Concomitant]
     Route: 065
  3. ZOCOR [Concomitant]
     Route: 065
  4. REVLIMID [Suspect]
     Dosage: 5 MILLIGRAM
     Route: 048
     Dates: start: 20111013, end: 20111101
  5. OXYBUTYNIN [Concomitant]
     Route: 065
  6. CEFEPIME [Concomitant]
     Dosage: 2 GRAM
     Route: 041
     Dates: start: 20111103
  7. EPOGEN [Concomitant]
     Route: 065
  8. PROCRIT [Concomitant]
     Route: 065
     Dates: start: 20110919
  9. CEFTAZIDIME [Concomitant]
     Dosage: 2 GRAM
     Route: 041
     Dates: start: 20111104
  10. NEUPOGEN [Concomitant]
     Indication: SUPPORTIVE CARE
     Route: 065

REACTIONS (7)
  - HAEMOGLOBIN DECREASED [None]
  - HAEMORRHAGE INTRACRANIAL [None]
  - PLATELET COUNT DECREASED [None]
  - RESPIRATORY FAILURE [None]
  - SEPSIS [None]
  - SUBDURAL HAEMATOMA [None]
  - WHITE BLOOD CELL COUNT DECREASED [None]
